FAERS Safety Report 9292549 (Version 1)
Quarter: 2013Q1

REPORT INFORMATION
  Report Type: Spontaneous
  Country: US (occurrence: None)
  Receive Date: 20121212
  Receipt Date: 20121212
  Transmission Date: 20140127
  Serious: No
  Sender: FDA-Public Use
  Company Number: 1210USA008842

PATIENT
  Age: 55 Year
  Sex: Male
  Weight: 74.8 kg

DRUGS (8)
  1. VICTRELIS [Suspect]
     Dosage: 4 DF, TID SPACED 7-9 HRS APART, ORAL?
     Route: 048
     Dates: start: 201203
  2. RIBAVIRIN [Suspect]
     Dates: start: 20120210
  3. PEGASYS [Suspect]
     Dates: start: 20120210
  4. ATENOLOL (ATENOLOL) TABLET [Concomitant]
  5. LISINOPRIL (LISINOPRIL) TABLET [Concomitant]
  6. PROCRIT (EPOETIN ALFA) INJECTION [Concomitant]
  7. VITAMINS (UNSPECIFIED) (VITAMINS (UNSPECIFIED)) CAPSULE [Concomitant]
  8. VITAMIN B (UNSPECIFIED) (VITAMIN B (UNSPECIFIED)) CAPSULE [Concomitant]

REACTIONS (8)
  - Mental impairment [None]
  - Dry skin [None]
  - Haemorrhoids [None]
  - Decreased appetite [None]
  - Weight decreased [None]
  - Alopecia [None]
  - Rash [None]
  - Platelet count decreased [None]
